FAERS Safety Report 13925839 (Version 2)
Quarter: 2017Q4

REPORT INFORMATION
  Report Type: Spontaneous
  Country: US (occurrence: US)
  Receive Date: 20170831
  Receipt Date: 20171003
  Transmission Date: 20180320
  Serious: No
  Sender: FDA-Public Use
  Company Number: US-PFIZER INC-2017373117

PATIENT
  Sex: Female

DRUGS (1)
  1. ADVIL [Suspect]
     Active Substance: IBUPROFEN
     Indication: PAIN IN EXTREMITY
     Dosage: 200 MG
     Route: 048

REACTIONS (6)
  - Poor quality drug administered [Recovered/Resolved]
  - Dysgeusia [Recovered/Resolved]
  - Suspected product tampering [Unknown]
  - Product physical issue [Unknown]
  - Product quality control issue [Unknown]
  - Product taste abnormal [Recovered/Resolved]

NARRATIVE: CASE EVENT DATE: 201708
